FAERS Safety Report 9115878 (Version 2)
Quarter: 2013Q1

REPORT INFORMATION
  Report Type: Spontaneous
  Country: US (occurrence: US)
  Receive Date: 20130225
  Receipt Date: 20130312
  Transmission Date: 20140127
  Serious: Yes (Hospitalization)
  Sender: FDA-Public Use
  Company Number: US-GLAXOSMITHKLINE-A1013319A

PATIENT
  Age: 48 Year
  Sex: Female

DRUGS (2)
  1. FLOLAN [Suspect]
     Dosage: 29.5NGKM CONTINUOUS
     Route: 042
     Dates: start: 20071105
  2. LASIX [Concomitant]

REACTIONS (2)
  - Pulmonary arterial pressure increased [Unknown]
  - Catheterisation cardiac [Unknown]
